FAERS Safety Report 25208142 (Version 1)
Quarter: 2025Q2

REPORT INFORMATION
  Report Type: Spontaneous
  Country: TW (occurrence: TW)
  Receive Date: 20250417
  Receipt Date: 20250417
  Transmission Date: 20250716
  Serious: Yes (Hospitalization)
  Sender: PFIZER
  Company Number: TW-Orion Corporation ORION PHARMA-TREX2025-0066

PATIENT
  Age: 57 Year
  Sex: Female
  Weight: 87 kg

DRUGS (2)
  1. METHOTREXATE SODIUM [Suspect]
     Active Substance: METHOTREXATE SODIUM
     Indication: Rheumatoid arthritis
     Route: 048
     Dates: start: 20240325, end: 20240501
  2. PLAQUENIL [Suspect]
     Active Substance: HYDROXYCHLOROQUINE SULFATE
     Indication: Rheumatoid arthritis
     Dates: start: 20240325

REACTIONS (13)
  - Toxicity to various agents [Unknown]
  - Mouth ulceration [Recovering/Resolving]
  - Skin ulcer [Recovering/Resolving]
  - Bandaemia [Recovered/Resolved]
  - Anaemia megaloblastic [Recovering/Resolving]
  - Acute kidney injury [Recovered/Resolved]
  - White blood cell count decreased [Recovered/Resolved]
  - Platelet count decreased [Recovered/Resolved]
  - Neutropenia [Unknown]
  - COVID-19 [Unknown]
  - Mucosal inflammation [Unknown]
  - Cellulitis [Unknown]
  - Oropharyngeal pain [Unknown]

NARRATIVE: CASE EVENT DATE: 20240325
